FAERS Safety Report 6500466-7 (Version None)
Quarter: 2009Q4

REPORT INFORMATION
  Report Type: 
  Country: None (occurrence: None)
  Receive Date: 20091215
  Receipt Date: 20091215
  Transmission Date: 20100525
  Serious: Yes (Hospitalization)
  Sender: FDA-Public Use
  Company Number: None

PATIENT
  Sex: Female
  Weight: 106.7 kg

DRUGS (4)
  1. FLUOROURACIL [Suspect]
     Dosage: 9552 MG
     Dates: end: 20091130
  2. ERBITUX [Suspect]
     Dosage: 2168 MG
     Dates: end: 20091207
  3. LEUCOVORIN CALCIUM [Suspect]
     Dosage: 1730 MG
     Dates: end: 20091130
  4. ELOXATIN [Suspect]
     Dosage: 276 MG
     Dates: end: 20091130

REACTIONS (1)
  - PULMONARY EMBOLISM [None]
